FAERS Safety Report 11178175 (Version 1)
Quarter: 2015Q2

REPORT INFORMATION
  Report Type: Spontaneous
  Country: US (occurrence: None)
  Receive Date: 20150515
  Receipt Date: 20150515
  Transmission Date: 20150821
  Serious: Yes (Other)
  Sender: FDA-Public Use
  Company Number: 2015000936

PATIENT
  Sex: Female
  Weight: 50 kg

DRUGS (1)
  1. CIMZIA [Suspect]
     Active Substance: CERTOLIZUMAB PEGOL
     Indication: CROHN^S DISEASE
     Route: 058
     Dates: start: 2014, end: 201410

REACTIONS (3)
  - Underdose [None]
  - Arthralgia [None]
  - Off label use [None]

NARRATIVE: CASE EVENT DATE: 2014
